FAERS Safety Report 14692666 (Version 1)
Quarter: 2018Q1

REPORT INFORMATION
  Report Type: Report from Study
  Country: None (occurrence: GR)
  Receive Date: 20180329
  Receipt Date: 20180329
  Transmission Date: 20180509
  Serious: Yes (Hospitalization)
  Sender: FDA-Public Use
  Company Number: GR-ABBVIE-18K-066-2301643-00

PATIENT
  Age: 82 Year
  Sex: Female
  Weight: 48 kg

DRUGS (3)
  1. GALOPRAN [Concomitant]
     Indication: DEPRESSION
     Route: 048
  2. REQUIP XL [Concomitant]
     Active Substance: ROPINIROLE HYDROCHLORIDE
     Indication: PARKINSON^S DISEASE
     Route: 048
     Dates: start: 20170908
  3. DUODOPA [Suspect]
     Active Substance: CARBIDOPA\LEVODOPA
     Indication: PARKINSON^S DISEASE
     Dosage: MORNING DOSE: 3.0 ML;??CONTINUOUS RATE: 0.9 ML/H;??EXTRA DOSE: 0.9 ML
     Route: 050
     Dates: start: 20170706

REACTIONS (3)
  - Joint dislocation [Recovering/Resolving]
  - Fall [Recovered/Resolved]
  - Gait disturbance [Unknown]

NARRATIVE: CASE EVENT DATE: 20180213
